FAERS Safety Report 25342316 (Version 1)
Quarter: 2025Q2

REPORT INFORMATION
  Report Type: Spontaneous
  Country: US (occurrence: None)
  Receive Date: 20250520
  Receipt Date: 20250520
  Transmission Date: 20250717
  Serious: Yes (Hospitalization)
  Sender: FDA-CTU
  Company Number: None

PATIENT
  Age: 71 Year
  Sex: Female

DRUGS (1)
  1. XDEMVY [Suspect]
     Active Substance: LOTILANER
     Indication: Ocular demodicosis
     Dosage: 1 GTT DROP (S) DAILY OPHTHALMIC
     Route: 047
     Dates: start: 20250415

REACTIONS (3)
  - Hepatic enzyme increased [None]
  - Yellow skin [None]
  - Urinary tract infection [None]

NARRATIVE: CASE EVENT DATE: 20250513
